FAERS Safety Report 5812676-2 (Version None)
Quarter: 2008Q3

REPORT INFORMATION
  Report Type: 
  Country: None (occurrence: None)
  Receive Date: 20080714
  Receipt Date: 20080714
  Transmission Date: 20090109
  Serious: Yes (Other)
  Sender: FDA-Public Use
  Company Number: None

PATIENT
  Age: 55 Year
  Sex: Female
  Weight: 72.5755 kg

DRUGS (2)
  1. ADVAIR DISKUS 500/50 [Suspect]
     Indication: CHRONIC OBSTRUCTIVE PULMONARY DISEASE
     Dosage: 2X EVERY DAY INHAL
     Route: 055
     Dates: start: 20030101, end: 20080713
  2. SPIRIVA [Concomitant]

REACTIONS (2)
  - CANDIDIASIS [None]
  - IMPAIRED WORK ABILITY [None]
